FAERS Safety Report 8824621 (Version 2)
Quarter: 2013Q2

REPORT INFORMATION
  Report Type: Report from Study
  Country: CO (occurrence: CO)
  Receive Date: 20121004
  Receipt Date: 20130520
  Transmission Date: 20140414
  Serious: Yes (Other)
  Sender: FDA-Public Use
  Company Number: PHHY2012CO085201

PATIENT
  Age: 66 Year
  Sex: Female

DRUGS (2)
  1. TEGRETOL [Suspect]
     Indication: PARKINSON^S DISEASE
     Dosage: 1 DF, TID
     Route: 048
  2. TEGRETOL [Suspect]
     Indication: OFF LABEL USE

REACTIONS (1)
  - Convulsion [Unknown]
